FAERS Safety Report 26163661 (Version 1)
Quarter: 2025Q4

REPORT INFORMATION
  Report Type: Spontaneous
  Country: US (occurrence: None)
  Receive Date: 20251216
  Receipt Date: 20251216
  Transmission Date: 20260117
  Serious: Yes (Hospitalization)
  Sender: FDA-CTU
  Company Number: None

PATIENT
  Age: 60 Year
  Sex: Male
  Weight: 117.9 kg

DRUGS (5)
  1. RISPERDAL CONSTA [Suspect]
     Active Substance: RISPERIDONE
  2. INVEGA SUSTENNA [Suspect]
     Active Substance: PALIPERIDONE PALMITATE
  3. HALOPERIDOL DECANOATE [Suspect]
     Active Substance: HALOPERIDOL DECANOATE
  4. INVEGA [Suspect]
     Active Substance: PALIPERIDONE
  5. OLANZAPINE [Suspect]
     Active Substance: OLANZAPINE

REACTIONS (10)
  - Dyskinesia [None]
  - Suicidal ideation [None]
  - Tongue movement disturbance [None]
  - Aphasia [None]
  - Diabetes mellitus [None]
  - Neuropathy peripheral [None]
  - Obesity [None]
  - Headache [None]
  - Drug monitoring procedure not performed [None]
  - Product prescribing issue [None]
